FAERS Safety Report 7807441-0 (Version None)
Quarter: 2011Q4

REPORT INFORMATION
  Report Type: 
  Country: None (occurrence: None)
  Receive Date: 20111011
  Receipt Date: 20110926
  Transmission Date: 20120403
  Serious: Yes (Disabling)
  Sender: FDA-Public Use
  Company Number: PHHY2011US59900

PATIENT
  Sex: Female

DRUGS (12)
  1. ENDEROL [Concomitant]
     Indication: MIGRAINE
     Dosage: UNK UKN, UNK
  2. PROTONIX [Concomitant]
     Dosage: UNK UKN, UNK
  3. RECLAST [Suspect]
     Indication: OSTEOPOROSIS
     Dosage: 5 MG, ONCE PER YEAR
     Route: 042
     Dates: start: 20110630
  4. GABAPENTIN [Concomitant]
     Dosage: UNK UKN, UNK
  5. ARICEPT [Concomitant]
     Dosage: UNK UKN, UNK
  6. EFFEXOR [Concomitant]
     Dosage: UNK UKN, UNK
  7. CLONAZEPAM [Concomitant]
     Dosage: UNK UKN, UNK
  8. HYDROCHLOROTHIAZIDE [Concomitant]
     Dosage: UNK UKN, UNK
  9. VITAMINS NOS [Concomitant]
     Dosage: UNK UKN, UNK
  10. TOPAMAX [Concomitant]
     Dosage: UNK UKN, UNK
  11. FLEXERIL [Concomitant]
     Dosage: UNK UKN, UNK
  12. TIZANIDINE HCL [Concomitant]
     Dosage: UNK UKN, UNK

REACTIONS (15)
  - BONE PAIN [None]
  - PYREXIA [None]
  - MYALGIA [None]
  - FACIAL PAIN [None]
  - MEMORY IMPAIRMENT [None]
  - APATHY [None]
  - ARTHRALGIA [None]
  - INFLUENZA [None]
  - SYNCOPE [None]
  - MALAISE [None]
  - VISION BLURRED [None]
  - PAIN IN JAW [None]
  - PARAESTHESIA [None]
  - PAIN [None]
  - HEADACHE [None]
